FAERS Safety Report 4753269-8 (Version None)
Quarter: 2005Q3

REPORT INFORMATION
  Report Type: 
  Country: None (occurrence: None)
  Receive Date: 20050824
  Receipt Date: 20050816
  Transmission Date: 20060218
  Serious: Yes (Hospitalization)
  Sender: FDA-Public Use
  Company Number: 216663

PATIENT
  Age: 68 Year
  Sex: Female

DRUGS (5)
  1. RAPTIVA [Suspect]
     Indication: PSORIASIS
     Dosage: 0.4 ML, 0.6 ML, SINGLE,
     Dates: start: 20050713, end: 20050713
  2. RAPTIVA [Suspect]
     Indication: PSORIASIS
     Dosage: 0.4 ML, 0.6 ML, SINGLE,
     Dates: start: 20050720, end: 20050720
  3. SYNTHROID [Concomitant]
  4. DOVONEX CREAM (CALCIPOTRIENE) [Concomitant]
  5. TEMOVATE CREAM 0.5% (CLOBETASOL PROPIONATE) [Concomitant]

REACTIONS (12)
  - ANGIOPATHY [None]
  - ARTERIAL DISORDER [None]
  - DIPLOPIA [None]
  - DIZZINESS [None]
  - EYELID PTOSIS [None]
  - HEADACHE [None]
  - HYPOAESTHESIA [None]
  - HYPOTHYROIDISM [None]
  - NEURITIS [None]
  - OCULAR MYASTHENIA [None]
  - VERTIGO [None]
  - VISION BLURRED [None]
